FAERS Safety Report 18656297 (Version 1)
Quarter: 2020Q4

REPORT INFORMATION
  Report Type: Spontaneous
  Country: US (occurrence: US)
  Receive Date: 20201223
  Receipt Date: 20201223
  Transmission Date: 20210114
  Serious: Yes (Other)
  Sender: FDA-Public Use
  Company Number: US-COOPERSURGICAL, INC.-US-2020CPS000221

PATIENT
  Age: 25 Year
  Sex: Female
  Weight: 101.13 kg

DRUGS (3)
  1. PROGESTIN [Concomitant]
     Active Substance: PROGESTERONE
     Indication: CONTRACEPTION
     Dosage: UNK
     Route: 065
     Dates: start: 201911, end: 201911
  2. PARAGARD T 380A [Suspect]
     Active Substance: COPPER
     Indication: CONTRACEPTION
     Dosage: UNK
     Route: 015
     Dates: start: 20161219, end: 20191216
  3. PRENATAL VITAMINS                  /02014401/ [Concomitant]
     Active Substance: VITAMINS
     Indication: PROPHYLAXIS
     Dosage: UNK
     Route: 065
     Dates: start: 20200106

REACTIONS (3)
  - Pregnancy with contraceptive device [Recovered/Resolved]
  - Device dislocation [Recovered/Resolved]
  - Drug ineffective [Unknown]

NARRATIVE: CASE EVENT DATE: 201911
